FAERS Safety Report 22261461 (Version 10)
Quarter: 2023Q4

REPORT INFORMATION
  Report Type: Report from Study
  Country: CO (occurrence: CO)
  Receive Date: 20230427
  Receipt Date: 20231222
  Transmission Date: 20240110
  Serious: Yes (Hospitalization, Other)
  Sender: FDA-Public Use
  Company Number: CO-TAKEDA-2022TUS089908

PATIENT
  Age: 5 Year
  Sex: Male
  Weight: 20 kg

DRUGS (3)
  1. IDURSULFASE [Suspect]
     Active Substance: IDURSULFASE
     Indication: Mucopolysaccharidosis II
     Dosage: 10 MILLIGRAM, 1/WEEK
     Route: 042
     Dates: start: 20220718
  2. IDURSULFASE [Suspect]
     Active Substance: IDURSULFASE
     Dosage: 12 MILLIGRAM, 1/WEEK
     Route: 042
  3. IDURSULFASE [Suspect]
     Active Substance: IDURSULFASE
     Dosage: 10 MILLIGRAM, 1/WEEK
     Route: 042

REACTIONS (12)
  - Inguinal hernia [Recovering/Resolving]
  - Abdominal pain [Recovering/Resolving]
  - Treatment noncompliance [Unknown]
  - Weight decreased [Unknown]
  - Product availability issue [Unknown]
  - Influenza [Recovering/Resolving]
  - Fall [Recovering/Resolving]
  - Testicular pain [Recovering/Resolving]
  - Weight increased [Unknown]
  - Urticaria [Recovering/Resolving]
  - Product prescribing error [Unknown]
  - Incorrect dose administered [Unknown]

NARRATIVE: CASE EVENT DATE: 20221121
